FAERS Safety Report 6007213-6 (Version None)
Quarter: 2008Q4

REPORT INFORMATION
  Report Type: 
  Country: None (occurrence: None)
  Receive Date: 20081217
  Receipt Date: 20080214
  Transmission Date: 20090506
  Serious: Yes (Other)
  Sender: FDA-Public Use
  Company Number: US-ASTRAZENECA-2008UW03138

PATIENT
  Age: 60 Year
  Sex: Male

DRUGS (11)
  1. CRESTOR [Suspect]
     Route: 048
  2. TOPROL-XL [Concomitant]
     Route: 048
  3. NORVASC [Concomitant]
  4. EXFORGE [Concomitant]
  5. ASPIRIN [Concomitant]
  6. SYNTHROID [Concomitant]
     Dosage: .0375 MG
  7. NEXIUM [Concomitant]
     Route: 048
  8. ZETIA [Concomitant]
  9. ENTOCORT EC [Concomitant]
  10. VITAMIN B6 [Concomitant]
  11. VITAMIN B-12 [Concomitant]

REACTIONS (1)
  - RHABDOMYOLYSIS [None]
